FAERS Safety Report 10608795 (Version 3)
Quarter: 2015Q1

REPORT INFORMATION
  Report Type: Report from Study
  Country: US (occurrence: US)
  Receive Date: 20141125
  Receipt Date: 20150304
  Transmission Date: 20150720
  Serious: Yes (Hospitalization)
  Sender: FDA-Public Use
  Company Number: US-GLAXOSMITHKLINE-US2014019917

PATIENT
  Age: 78 Year
  Sex: Male
  Weight: 65.7 kg

DRUGS (4)
  1. FLUTICASONE FUROATE [Suspect]
     Active Substance: FLUTICASONE FUROATE
     Indication: CHRONIC OBSTRUCTIVE PULMONARY DISEASE
     Dosage: 100 UG, QD
     Route: 055
     Dates: start: 20110826
  2. LISINOPRIL. [Concomitant]
     Active Substance: LISINOPRIL
     Indication: HYPERTENSION
     Dosage: 10 MG, OD
     Route: 048
     Dates: start: 20140217
  3. ATORVASTATIN [Concomitant]
     Active Substance: ATORVASTATIN
     Indication: HYPERLIPIDAEMIA
     Dosage: 500 MG, OD
     Route: 048
     Dates: start: 20140220
  4. LUNESTA [Concomitant]
     Active Substance: ESZOPICLONE
     Indication: INSOMNIA
     Dosage: 3 MG, QPM
     Route: 048
     Dates: start: 20140210

REACTIONS (1)
  - Pelvic fracture [Recovering/Resolving]

NARRATIVE: CASE EVENT DATE: 20141031
